FAERS Safety Report 16504882 (Version 2)
Quarter: 2020Q3

REPORT INFORMATION
  Report Type: Spontaneous
  Country: US (occurrence: US)
  Receive Date: 20190701
  Receipt Date: 20200701
  Transmission Date: 20201102
  Serious: No
  Sender: FDA-Public Use
  Company Number: US-PFM-2018-14816

PATIENT

DRUGS (3)
  1. HEMANGEOL [Suspect]
     Active Substance: PROPRANOLOL HYDROCHLORIDE
     Indication: HAEMANGIOMA
     Dosage: 6 ML, BID (2/DAY) WITH FOOD.
     Route: 048
     Dates: start: 201410
  2. HEMANGEOL [Suspect]
     Active Substance: PROPRANOLOL HYDROCHLORIDE
     Indication: CONGENITAL ANOMALY
     Dosage: 6 ML, BID (2/DAY) WITH FOOD.
     Route: 048
     Dates: start: 201410
  3. HEMANGEOL [Suspect]
     Active Substance: PROPRANOLOL HYDROCHLORIDE
     Indication: OFF LABEL USE

REACTIONS (5)
  - Product use issue [Unknown]
  - Product administered to patient of inappropriate age [Unknown]
  - Blood glucose decreased [Not Recovered/Not Resolved]
  - Off label use [Unknown]
  - Product use in unapproved indication [Unknown]
